FAERS Safety Report 5343303-9 (Version None)
Quarter: 2007Q2

REPORT INFORMATION
  Report Type: 
  Country: None (occurrence: None)
  Receive Date: 20070502
  Receipt Date: 20060926
  Transmission Date: 20071010
  Serious: Yes (Hospitalization)
  Sender: FDA-Public Use
  Company Number: PHEH2006US11556

PATIENT
  Age: 78 Year
  Sex: Female
  Weight: 65.3 kg

DRUGS (2)
  1. LOTREL [Suspect]
     Indication: HYPERTENSION
     Dosage: 10/20, QD, ORAL
     Route: 048
     Dates: start: 20040901, end: 20060908
  2. DIOVAN HCT [Concomitant]

REACTIONS (2)
  - ANGIOEDEMA [None]
  - SWOLLEN TONGUE [None]
